FAERS Safety Report 5890161-X (Version None)
Quarter: 2008Q3

REPORT INFORMATION
  Report Type: 
  Country: None (occurrence: None)
  Receive Date: 20080919
  Receipt Date: 20080908
  Transmission Date: 20090109
  Serious: Yes (Hospitalization)
  Sender: FDA-Public Use
  Company Number: JP-PFIZER INC-2008071635

PATIENT
  Sex: Female
  Weight: 64 kg

DRUGS (6)
  1. SU-011,248 [Suspect]
     Indication: BREAST CANCER
     Route: 048
     Dates: start: 20080715, end: 20080730
  2. SU-011,248 [Suspect]
     Route: 048
     Dates: start: 20080805, end: 20080812
  3. SU-011,248 [Suspect]
     Route: 048
     Dates: start: 20080819, end: 20080825
  4. LOXOPROFEN SODIUM [Suspect]
     Dosage: FREQ:60MG AS NEEDED
     Route: 048
  5. LEVOTHYROXINE SODIUM [Concomitant]
     Indication: HYPOTHYROIDISM
     Route: 048
     Dates: start: 20080624
  6. BISPHOSPHONATES [Concomitant]
     Indication: METASTASES TO BONE

REACTIONS (1)
  - MALAISE [None]
